FAERS Safety Report 23289638 (Version 1)
Quarter: 2023Q4

REPORT INFORMATION
  Report Type: Other
  Country: US (occurrence: US)
  Receive Date: 20231212
  Receipt Date: 20231212
  Transmission Date: 20240110
  Serious: Yes (Hospitalization, Other)
  Sender: FDA-Public Use
  Company Number: US-Genus_Lifesciences-USA-POI0580202300211

PATIENT
  Sex: Male

DRUGS (1)
  1. YOSPRALA [Suspect]
     Active Substance: ASPIRIN\OMEPRAZOLE
     Indication: Dyspepsia
     Dosage: UNKNOWN
     Route: 065
     Dates: end: 2023

REACTIONS (2)
  - Kounis syndrome [Recovered/Resolved]
  - Hypersensitivity [Recovered/Resolved]

NARRATIVE: CASE EVENT DATE: 20230101
